FAERS Safety Report 18977822 (Version 1)
Quarter: 2021Q1

REPORT INFORMATION
  Report Type: Spontaneous
  Country: IN (occurrence: IN)
  Receive Date: 20210306
  Receipt Date: 20210306
  Transmission Date: 20210420
  Serious: Yes (Other)
  Sender: FDA-Public Use
  Company Number: NVSC2021IN050593

PATIENT
  Age: 44 Year
  Sex: Male

DRUGS (2)
  1. SIMULECT [Suspect]
     Active Substance: BASILIXIMAB
     Dosage: 20 MG, UNKNOWN
     Route: 065
     Dates: start: 20210221
  2. SIMULECT [Suspect]
     Active Substance: BASILIXIMAB
     Indication: RENAL TRANSPLANT
     Dosage: 20 MG, UNKNOWN
     Route: 065
     Dates: start: 20210217

REACTIONS (1)
  - Kidney transplant rejection [Unknown]

NARRATIVE: CASE EVENT DATE: 20210225
